FAERS Safety Report 22215691 (Version 1)
Quarter: 2023Q2

REPORT INFORMATION
  Report Type: Spontaneous
  Country: US (occurrence: US)
  Receive Date: 20230416
  Receipt Date: 20230416
  Transmission Date: 20230721
  Serious: No
  Sender: FDA-Public Use
  Company Number: US-SANOFI-01572846

PATIENT
  Age: 3 Year
  Sex: Male

DRUGS (4)
  1. DUPIXENT [Suspect]
     Active Substance: DUPILUMAB
     Indication: Eczema
     Dosage: 200 MG QOW
     Dates: start: 202302
  2. BUDESONIDE [Concomitant]
     Active Substance: BUDESONIDE
  3. TRIAMCINOLONE [Concomitant]
     Active Substance: TRIAMCINOLONE
  4. SINGULAIR [Concomitant]
     Active Substance: MONTELUKAST SODIUM

REACTIONS (1)
  - Injection site indentation [Unknown]

NARRATIVE: CASE EVENT DATE: 20230411
